FAERS Safety Report 21200140 (Version 1)
Quarter: 2022Q3

REPORT INFORMATION
  Report Type: Spontaneous
  Country: GR (occurrence: GR)
  Receive Date: 20220811
  Receipt Date: 20220811
  Transmission Date: 20221027
  Serious: Yes (Hospitalization, Other)
  Sender: FDA-Public Use
  Company Number: GR-TEVA-2022-GR-2053135

PATIENT
  Age: 51 Year
  Sex: Male

DRUGS (1)
  1. VELCADE [Suspect]
     Active Substance: BORTEZOMIB
     Indication: Plasma cell myeloma
     Dosage: UNK
     Route: 065

REACTIONS (7)
  - Hemianopia [Recovered/Resolved]
  - Epilepsy [Recovered/Resolved]
  - Hemiparesis [Recovered/Resolved]
  - Paresis [Recovered/Resolved]
  - Posterior reversible encephalopathy syndrome [Unknown]
  - Dysarthria [Recovered/Resolved]
  - Hypertension [Recovered/Resolved]
